FAERS Safety Report 17325868 (Version 5)
Quarter: 2020Q3

REPORT INFORMATION
  Report Type: Report from Study
  Country: US (occurrence: US)
  Receive Date: 20200127
  Receipt Date: 20200721
  Transmission Date: 20201102
  Serious: Yes (Hospitalization, Other)
  Sender: FDA-Public Use
  Company Number: NVSC2020US014941

PATIENT
  Age: 58 Year
  Sex: Female

DRUGS (1)
  1. ENTRESTO [Suspect]
     Active Substance: SACUBITRIL\VALSARTAN
     Indication: CARDIAC FAILURE
     Dosage: 24 MG, BID
     Route: 048
     Dates: start: 201912

REACTIONS (5)
  - Bradyphrenia [Not Recovered/Not Resolved]
  - Speech disorder [Not Recovered/Not Resolved]
  - Cerebrovascular accident [Recovering/Resolving]
  - Coagulopathy [Unknown]
  - Ejection fraction abnormal [Recovering/Resolving]

NARRATIVE: CASE EVENT DATE: 201912
